FAERS Safety Report 16363252 (Version 1)
Quarter: 2019Q3

REPORT INFORMATION
  Report Type: Spontaneous
  Country: US (occurrence: US)
  Receive Date: 20190527
  Receipt Date: 20190527
  Transmission Date: 20191004
  Serious: Yes (Other)
  Sender: FDA-Public Use
  Company Number: None

PATIENT
  Age: 4 Week
  Sex: Female
  Weight: 4.5 kg

DRUGS (5)
  1. DIAZOXIDE [Concomitant]
     Active Substance: DIAZOXIDE
  2. VANCOMYCIN [Concomitant]
     Active Substance: VANCOMYCIN
  3. D10W [Concomitant]
     Active Substance: DEXTROSE\WATER
  4. GLUCAGON. [Suspect]
     Active Substance: GLUCAGON
     Indication: HYPOGLYCAEMIA
     Dosage: ?          OTHER FREQUENCY:HOURLY;?
     Route: 041
     Dates: start: 20190329, end: 20190409
  5. HYDROCORTISONE. [Concomitant]
     Active Substance: HYDROCORTISONE

REACTIONS (2)
  - Rash generalised [None]
  - Rash [None]

NARRATIVE: CASE EVENT DATE: 20190409
